FAERS Safety Report 19062209 (Version 1)
Quarter: 2021Q1

REPORT INFORMATION
  Report Type: Spontaneous
  Country: US (occurrence: US)
  Receive Date: 20210326
  Receipt Date: 20210326
  Transmission Date: 20210420
  Serious: Yes (Other)
  Sender: FDA-Public Use
  Company Number: US-GLAXOSMITHKLINE-USCH2021015163

PATIENT
  Age: 17 Year
  Sex: Male

DRUGS (1)
  1. GAVISCON EXTRA STRENGTH [Suspect]
     Active Substance: ALUMINUM HYDROXIDE\MAGNESIUM CARBONATE
     Indication: DYSPEPSIA
     Dosage: 2 TO 3 TIMES A DAY WITH MEALS

REACTIONS (2)
  - Wrong technique in product usage process [Unknown]
  - Haematochezia [Unknown]
